FAERS Safety Report 13647343 (Version 1)
Quarter: 2017Q2

REPORT INFORMATION
  Report Type: Spontaneous
  Country: US (occurrence: US)
  Receive Date: 20170613
  Receipt Date: 20170613
  Transmission Date: 20170830
  Serious: Yes (Other)
  Sender: FDA-Public Use
  Company Number: None

PATIENT
  Age: 69 Year
  Sex: Female

DRUGS (1)
  1. IBRANCE [Suspect]
     Active Substance: PALBOCICLIB
     Indication: BREAST CANCER
     Dosage: 1 CAPSULE DAILY ON DAYS 1-21, EVERY 28 DAYS PO
     Route: 048
     Dates: start: 20160603

REACTIONS (3)
  - Fatigue [None]
  - Neuropathy peripheral [None]
  - Asthenia [None]

NARRATIVE: CASE EVENT DATE: 20160603
